FAERS Safety Report 14431668 (Version 2)
Quarter: 2018Q1

REPORT INFORMATION
  Report Type: Spontaneous
  Country: US (occurrence: US)
  Receive Date: 20180124
  Receipt Date: 20180307
  Transmission Date: 20180509
  Serious: No
  Sender: FDA-Public Use
  Company Number: US-PFIZER INC-2018028231

PATIENT
  Age: 90 Year
  Sex: Female
  Weight: 78.47 kg

DRUGS (2)
  1. PREMARIN [Suspect]
     Active Substance: ESTROGENS, CONJUGATED
     Indication: ATROPHY
     Dosage: 2 G, DAILY 2GM VAGINALLY EVERY NIGHT
     Route: 067
     Dates: start: 201712
  2. PREMARIN [Suspect]
     Active Substance: ESTROGENS, CONJUGATED
     Indication: INFLAMMATION

REACTIONS (5)
  - Drug ineffective [Recovering/Resolving]
  - Dysstasia [Unknown]
  - Orthostatic tremor [Unknown]
  - Product quality issue [Recovering/Resolving]
  - Medication residue present [Unknown]

NARRATIVE: CASE EVENT DATE: 201712
